FAERS Safety Report 16660019 (Version 2)
Quarter: 2019Q3

REPORT INFORMATION
  Report Type: Spontaneous
  Country: DE (occurrence: DE)
  Receive Date: 20190802
  Receipt Date: 20190823
  Transmission Date: 20191004
  Serious: Yes (Other)
  Sender: FDA-Public Use
  Company Number: DE-BAYER-2019-139643

PATIENT
  Age: 72 Year
  Sex: Male
  Weight: 103 kg

DRUGS (3)
  1. THIOGAMMA [Concomitant]
     Active Substance: .ALPHA.-LIPOIC ACID
     Dosage: 600 MG
     Route: 048
  2. GADOLINIUM IN UNSPECIFIED DRUG [Suspect]
     Active Substance: GADOLINIUM
     Indication: NUCLEAR MAGNETIC RESONANCE IMAGING
     Dosage: UNK, ONCE
     Dates: start: 20130423, end: 20130423
  3. EUTHYROX [Concomitant]
     Active Substance: LEVOTHYROXINE SODIUM
     Dosage: 100 ?G

REACTIONS (24)
  - Muscular weakness [Not Recovered/Not Resolved]
  - Sleep disorder [None]
  - Motor dysfunction [None]
  - Flatulence [None]
  - Head discomfort [None]
  - Balance disorder [Not Recovered/Not Resolved]
  - Fatigue [None]
  - Toothache [None]
  - Dental necrosis [None]
  - Hyperhidrosis [None]
  - Contrast media toxicity [None]
  - Gait disturbance [None]
  - Eye irritation [None]
  - Cough [Recovering/Resolving]
  - Abdominal discomfort [None]
  - Skin plaque [Recovering/Resolving]
  - Visual impairment [None]
  - Dry mouth [None]
  - Faeces hard [None]
  - Abdominal pain [None]
  - Feeling of body temperature change [None]
  - Productive cough [None]
  - Dysarthria [None]
  - Nontherapeutic agent blood positive [None]

NARRATIVE: CASE EVENT DATE: 201807
